FAERS Safety Report 14184399 (Version 1)
Quarter: 2017Q4

REPORT INFORMATION
  Report Type: Spontaneous
  Country: US (occurrence: US)
  Receive Date: 20171113
  Receipt Date: 20171113
  Transmission Date: 20180321
  Serious: No
  Sender: FDA-Public Use
  Company Number: US-MYLANLABS-2017M1070807

PATIENT
  Age: 80 Year
  Sex: Male

DRUGS (4)
  1. OXYGEN. [Concomitant]
     Active Substance: OXYGEN
     Indication: PRODUCT USED FOR UNKNOWN INDICATION
     Dosage: UNK
  2. FLOVENT [Concomitant]
     Active Substance: FLUTICASONE PROPIONATE
     Indication: PRODUCT USED FOR UNKNOWN INDICATION
     Dosage: UNK
  3. LEVALBUTEROL INHALATION SOLUTION, USP [Suspect]
     Active Substance: LEVALBUTEROL
     Indication: PULMONARY FIBROSIS
     Dosage: 1 VIAL VIA NEBULIZER EVERY 6 HOURS AS NEEDED
     Route: 048
  4. LEVALBUTEROL INHALATION SOLUTION, USP [Suspect]
     Active Substance: LEVALBUTEROL
     Dosage: 1 VIAL VIA NEBULIZER EVERY 6 HOURS AS NEEDED
     Route: 048

REACTIONS (3)
  - Drug effect decreased [Recovered/Resolved]
  - Nasal discomfort [Not Recovered/Not Resolved]
  - Product use in unapproved indication [Recovered/Resolved]
